FAERS Safety Report 9457023 (Version 1)
Quarter: 2013Q3

REPORT INFORMATION
  Report Type: Spontaneous
  Country: US (occurrence: US)
  Receive Date: 20130814
  Receipt Date: 20130814
  Transmission Date: 20140515
  Serious: Yes (Death)
  Sender: FDA-Public Use
  Company Number: US-JNJFOC-20130805174

PATIENT
  Age: 4 Month
  Sex: Female

DRUGS (1)
  1. BENADRYL [Suspect]
     Indication: SLEEP DISORDER THERAPY
     Route: 065

REACTIONS (2)
  - Off label use [Fatal]
  - Overdose [Fatal]
